FAERS Safety Report 13238243 (Version 1)
Quarter: 2017Q1

REPORT INFORMATION
  Report Type: Report from Study
  Country: US (occurrence: US)
  Receive Date: 20170216
  Receipt Date: 20170216
  Transmission Date: 20170428
  Serious: Yes (Hospitalization)
  Sender: FDA-Public Use
  Company Number: US-GILEAD-2017-0256142

PATIENT
  Age: 34 Year
  Sex: Female

DRUGS (8)
  1. UPTRAVI [Suspect]
     Active Substance: SELEXIPAG
     Indication: PULMONARY HYPERTENSION
     Dosage: 200 UG, BID
     Route: 065
     Dates: start: 20170109, end: 20170201
  2. ADCIRCA [Suspect]
     Active Substance: TADALAFIL
     Indication: PRODUCT USED FOR UNKNOWN INDICATION
     Route: 065
  3. SERTRALINE [Concomitant]
     Active Substance: SERTRALINE HYDROCHLORIDE
  4. AMBRISENTAN [Suspect]
     Active Substance: AMBRISENTAN
     Indication: PULMONARY HYPERTENSION
     Dosage: 10 MG, QD
     Route: 065
     Dates: start: 20150715
  5. LOSARTAN. [Concomitant]
     Active Substance: LOSARTAN
  6. BACTRIM [Concomitant]
     Active Substance: SULFAMETHOXAZOLE\TRIMETHOPRIM
  7. GABAPENTIN. [Concomitant]
     Active Substance: GABAPENTIN
  8. SPIRONOLACTONE. [Concomitant]
     Active Substance: SPIRONOLACTONE

REACTIONS (5)
  - Abdominal discomfort [Not Recovered/Not Resolved]
  - Rectal haemorrhage [Recovered/Resolved]
  - Swelling [Recovered/Resolved]
  - Swelling [Not Recovered/Not Resolved]
  - Colon injury [Unknown]

NARRATIVE: CASE EVENT DATE: 20170109
